FAERS Safety Report 8264501-0 (Version None)
Quarter: 2012Q2

REPORT INFORMATION
  Report Type: 
  Country: None (occurrence: None)
  Receive Date: 20120406
  Receipt Date: 20120325
  Transmission Date: 20120825
  Serious: Yes (Other)
  Sender: FDA-Public Use
  Company Number: US-RANBAXY-2012US-55257

PATIENT
  Age: 27 Year
  Sex: Male

DRUGS (3)
  1. RISPERIDONE [Concomitant]
     Indication: PRODUCT USED FOR UNKNOWN INDICATION
     Route: 065
  2. PAROXETINE [Suspect]
     Indication: PRODUCT USED FOR UNKNOWN INDICATION
     Dosage: UNK
     Route: 065
  3. ZOLPIDEM TARTRATE [Suspect]
     Indication: INSOMNIA
     Dosage: UNK
     Route: 065

REACTIONS (9)
  - VISION BLURRED [None]
  - FEELING DRUNK [None]
  - MANIA [None]
  - INSOMNIA [None]
  - PSYCHOMOTOR SKILLS IMPAIRED [None]
  - PSYCHOTIC DISORDER [None]
  - DRUG LEVEL INCREASED [None]
  - DRUG INTERACTION [None]
  - GRANDIOSITY [None]
